FAERS Safety Report 21069984 (Version 2)
Quarter: 2022Q4

REPORT INFORMATION
  Report Type: Spontaneous
  Country: US (occurrence: US)
  Receive Date: 20220712
  Receipt Date: 20221028
  Transmission Date: 20230113
  Serious: Yes (Other)
  Sender: FDA-Public Use
  Company Number: US-CLOVIS ONCOLOGY-CLO-2022-000779

PATIENT
  Sex: Female

DRUGS (2)
  1. RUBRACA [Suspect]
     Active Substance: RUCAPARIB CAMSYLATE
     Indication: Ovarian cancer stage IV
     Dosage: ^HALF DOSE OF RUBRACA-300MG PO BID^
     Route: 048
  2. ZOFRAN [Concomitant]
     Active Substance: ONDANSETRON HYDROCHLORIDE
     Indication: Product used for unknown indication

REACTIONS (7)
  - Ileus [Unknown]
  - Diphtheria [Unknown]
  - Enteric neuropathy [Unknown]
  - Metastases to liver [Unknown]
  - Vitamin D deficiency [Unknown]
  - Abdominal mass [Unknown]
  - Drug ineffective [Unknown]
